FAERS Safety Report 4990039-X (Version None)
Quarter: 2006Q2

REPORT INFORMATION
  Report Type: 
  Country: None (occurrence: None)
  Receive Date: 20060427
  Receipt Date: 20060417
  Transmission Date: 20061013
  Serious: Yes (Life-Threatening, Hospitalization, Other)
  Sender: FDA-Public Use
  Company Number: 2006040026

PATIENT
  Age: 8 Year
  Sex: Female
  Weight: 23 kg

DRUGS (4)
  1. TALOXA (FELBAMATE) [Suspect]
     Indication: EPILEPSY
     Dosage: 900MG DAILY, ORAL
     Route: 048
     Dates: start: 20050715, end: 20060331
  2. LAMICTAL [Concomitant]
  3. TOPAMAX [Concomitant]
  4. FRISIUM (CLOBAZAM) [Concomitant]

REACTIONS (3)
  - GINGIVAL BLEEDING [None]
  - HAEMATOMA [None]
  - PLATELET COUNT DECREASED [None]
